FAERS Safety Report 19213549 (Version 1)
Quarter: 2021Q2

REPORT INFORMATION
  Report Type: Spontaneous
  Country: US (occurrence: US)
  Receive Date: 20210505
  Receipt Date: 20210505
  Transmission Date: 20210717
  Serious: No
  Sender: FDA-Public Use
  Company Number: US-ORGANON-O2104USA000982

PATIENT
  Sex: Female

DRUGS (2)
  1. NEXPLANON [Suspect]
     Active Substance: ETONOGESTREL
     Dosage: 1 IMPLANT, IN OPPOSITE ARM
     Dates: start: 20210408
  2. NEXPLANON [Suspect]
     Active Substance: ETONOGESTREL
     Indication: CONTRACEPTION
     Dosage: 68 MILLIGRAM
     Route: 059
     Dates: start: 20191125, end: 20210408

REACTIONS (3)
  - Implant site abscess [Not Recovered/Not Resolved]
  - Device placement issue [Not Recovered/Not Resolved]
  - Implant site abscess [Recovered/Resolved]

NARRATIVE: CASE EVENT DATE: 20201020
